FAERS Safety Report 5612165-4 (Version None)
Quarter: 2008Q1

REPORT INFORMATION
  Report Type: 
  Country: None (occurrence: None)
  Receive Date: 20080131
  Receipt Date: 20080131
  Transmission Date: 20080703
  Serious: Yes (Other)
  Sender: FDA-Public Use
  Company Number: None

PATIENT
  Age: 12 Month
  Sex: Male
  Weight: 104.3273 kg

DRUGS (1)
  1. ZETIA [Suspect]
     Indication: BLOOD TRIGLYCERIDES INCREASED
     Dosage: 1 PILL DAILY PO
     Route: 048
     Dates: start: 20070101, end: 20080101

REACTIONS (2)
  - ARTHRALGIA [None]
  - PAIN IN EXTREMITY [None]
